FAERS Safety Report 7250398-4 (Version None)
Quarter: 2011Q1

REPORT INFORMATION
  Report Type: 
  Country: None (occurrence: None)
  Receive Date: 20110128
  Receipt Date: 20110117
  Transmission Date: 20110831
  Serious: Yes (Other)
  Sender: FDA-Public Use
  Company Number: US-ROCHE-746408

PATIENT
  Sex: Female
  Weight: 77 kg

DRUGS (6)
  1. CARBOPLATIN [Suspect]
     Indication: BREAST CANCER
     Dosage: DOSE : 6 AUC. FREQUENCY: 21 DAYS X CYCLES
     Route: 042
     Dates: start: 20090424, end: 20090818
  2. EFFEXOR XR [Concomitant]
     Dosage: FREQUENCY REPORTED AS DAILY
     Dates: start: 20101112
  3. TAMOXIFEN [Suspect]
     Indication: BREAST CANCER
     Dosage: FREQUENCY REPORTED AS DAILY
     Route: 048
     Dates: start: 20100301, end: 20100701
  4. TRASTUZUMAB [Suspect]
     Indication: BREAST CANCER
     Dosage: LOADING DOSE OF HERCEPTIN
     Route: 042
     Dates: start: 20090424
  5. TRASTUZUMAB [Suspect]
     Dosage: MAINTANCE DOSE, THREE WEEKS LATER. FREQUENCY: 3 WEEKS X 6 CYCLES
     Route: 042
     Dates: end: 20100630
  6. IXABEPILONE [Suspect]
     Indication: BREAST CANCER
     Dosage: LAST DOSE PRIOR TO SAE: 18 AUGUST 2009, FREQUENCY: 21 DAYS X 6 CYCLES
     Route: 042
     Dates: start: 20090424, end: 20090818

REACTIONS (1)
  - ABORTION SPONTANEOUS [None]
